FAERS Safety Report 19250301 (Version 1)
Quarter: 2021Q2

REPORT INFORMATION
  Report Type: Spontaneous
  Country: US (occurrence: US)
  Receive Date: 20210513
  Receipt Date: 20210513
  Transmission Date: 20210717
  Serious: Yes (Other)
  Sender: FDA-Public Use
  Company Number: US-ACS-002003

PATIENT
  Age: 101 Year
  Sex: Female

DRUGS (2)
  1. COVID?19 VACCINE BNT162B2 [Concomitant]
     Indication: IMMUNISATION
     Dosage: 2 DOSES ON 10/02 AND 03/03/2021 RESPECTIVELY
     Route: 030
  2. CEFEPIME [Suspect]
     Active Substance: CEFEPIME HYDROCHLORIDE
     Indication: OSTEOMYELITIS
     Route: 042

REACTIONS (3)
  - Renal failure [Recovered/Resolved]
  - Off label use [Recovered/Resolved]
  - Type IV hypersensitivity reaction [Recovered/Resolved]
